FAERS Safety Report 11236580 (Version 1)
Quarter: 2015Q3

REPORT INFORMATION
  Report Type: Spontaneous
  Country: US (occurrence: US)
  Receive Date: 20150702
  Receipt Date: 20150702
  Transmission Date: 20151125
  Serious: No
  Sender: FDA-Public Use
  Company Number: US-TAKEDA-2015TUS004666

PATIENT
  Sex: Female
  Weight: 125.17 kg

DRUGS (2)
  1. CONTRAVE [Suspect]
     Active Substance: BUPROPION HYDROCHLORIDE\NALTREXONE HYDROCHLORIDE
     Dosage: TWO TABLETS IN AM AND TWO TABLETS IN PM
     Route: 065
  2. CONTRAVE [Suspect]
     Active Substance: BUPROPION HYDROCHLORIDE\NALTREXONE HYDROCHLORIDE
     Indication: OBESITY
     Dosage: UNK
     Route: 048

REACTIONS (5)
  - Vomiting [Recovering/Resolving]
  - Constipation [Unknown]
  - Drug ineffective [Not Recovered/Not Resolved]
  - Fat intolerance [Unknown]
  - Nausea [Recovering/Resolving]
